FAERS Safety Report 5847493-0 (Version None)
Quarter: 2008Q3

REPORT INFORMATION
  Report Type: 
  Country: None (occurrence: None)
  Receive Date: 20080814
  Receipt Date: 20080805
  Transmission Date: 20090109
  Serious: Yes (Other)
  Sender: FDA-Public Use
  Company Number: 1-16378551

PATIENT
  Age: 86 Year
  Sex: Female
  Weight: 88.4514 kg

DRUGS (4)
  1. CLOBETASOL PROPIONATE [Suspect]
     Indication: ERYTHEMA
     Dosage: UNK, CUTANEOUS
     Route: 003
     Dates: end: 20080701
  2. LASIX [Concomitant]
  3. PROCTOSOL HC (HYDROCORTISONE) [Concomitant]
  4. BIOFREEZE PAIN RELIEVING GEL [Concomitant]
     Indication: OEDEMA PERIPHERAL

REACTIONS (3)
  - CATARACT [None]
  - MACULAR DEGENERATION [None]
  - VISION BLURRED [None]
